FAERS Safety Report 4754132-9 (Version None)
Quarter: 2005Q3

REPORT INFORMATION
  Report Type: 
  Country: None (occurrence: None)
  Receive Date: 20050825
  Receipt Date: 20050302
  Transmission Date: 20060218
  Serious: Yes (Other)
  Sender: FDA-Public Use
  Company Number: HQWYE967109MAR05

PATIENT
  Age: 3 Year
  Sex: Female
  Weight: 14.53 kg

DRUGS (2)
  1. CHILDREN'S ADVIL [Suspect]
     Indication: EAR INFECTION
     Dosage: 1 TSP 1X PER 1 DAY, ORAL
     Route: 048
     Dates: start: 20050226, end: 20050227
  2. CHILDREN'S ADVIL [Suspect]
     Indication: NASOPHARYNGITIS
     Dosage: 1 TSP 1X PER 1 DAY, ORAL
     Route: 048
     Dates: start: 20050226, end: 20050227

REACTIONS (1)
  - REGURGITATION OF FOOD [None]
